FAERS Safety Report 16369425 (Version 4)
Quarter: 2019Q3

REPORT INFORMATION
  Report Type: Report from Study
  Country: US (occurrence: US)
  Receive Date: 20190529
  Receipt Date: 20190812
  Transmission Date: 20191004
  Serious: No
  Sender: FDA-Public Use
  Company Number: PHEH2019US023003

PATIENT
  Sex: Male

DRUGS (1)
  1. ENTRESTO [Suspect]
     Active Substance: SACUBITRIL\VALSARTAN
     Indication: PRODUCT USED FOR UNKNOWN INDICATION
     Dosage: UNK, BID
     Route: 048

REACTIONS (9)
  - Stress [Unknown]
  - Weight increased [Unknown]
  - Lethargy [Unknown]
  - Pain in extremity [Unknown]
  - Pruritus [Unknown]
  - Fluid retention [Unknown]
  - Weight fluctuation [Unknown]
  - Hypotension [Unknown]
  - Fatigue [Unknown]
